FAERS Safety Report 11316537 (Version 1)
Quarter: 2015Q3

REPORT INFORMATION
  Report Type: Report from Study
  Country: GB (occurrence: GB)
  Receive Date: 20150728
  Receipt Date: 20150728
  Transmission Date: 20151125
  Serious: Yes (Life-Threatening, Other)
  Sender: FDA-Public Use
  Company Number: GB-GLAXOSMITHKLINE INC.-GB2015GSK106079

PATIENT
  Sex: Male
  Weight: 105 kg

DRUGS (4)
  1. CAPECITABINE. [Suspect]
     Active Substance: CAPECITABINE
     Indication: ADENOCARCINOMA
     Dosage: 1000 MG, CYC
     Route: 048
     Dates: start: 20150701
  2. TYKERB [Suspect]
     Active Substance: LAPATINIB DITOSYLATE
     Indication: ADENOCARCINOMA
     Dosage: 1250 MG, CYC
     Route: 048
     Dates: start: 20150701
  3. CISPLATIN. [Suspect]
     Active Substance: CISPLATIN
     Indication: ADENOCARCINOMA
     Dosage: 140 MG, UNK
     Route: 042
     Dates: start: 20150701
  4. EPIRUBICIN [Suspect]
     Active Substance: EPIRUBICIN
     Indication: ADENOCARCINOMA
     Dosage: 112 MG, CYC
     Route: 042
     Dates: start: 20150701

REACTIONS (1)
  - Pulmonary embolism [Recovered/Resolved]

NARRATIVE: CASE EVENT DATE: 20150721
